FAERS Safety Report 8165241-9 (Version None)
Quarter: 2012Q1

REPORT INFORMATION
  Report Type: 
  Country: None (occurrence: None)
  Receive Date: 20120227
  Receipt Date: 20120224
  Transmission Date: 20120608
  Serious: No
  Sender: FDA-Public Use
  Company Number: US-PFIZER INC-2012050058

PATIENT
  Sex: Female
  Weight: 81.633 kg

DRUGS (1)
  1. NEURONTIN [Suspect]
     Indication: NEURALGIA
     Dosage: 300 MG, DAILY
     Dates: start: 20120201

REACTIONS (3)
  - MYALGIA [None]
  - FATIGUE [None]
  - ARTHRALGIA [None]
